FAERS Safety Report 22802253 (Version 2)
Quarter: 2024Q2

REPORT INFORMATION
  Report Type: Spontaneous
  Country: US (occurrence: US)
  Receive Date: 20230809
  Receipt Date: 20240401
  Transmission Date: 20240715
  Serious: No
  Sender: FDA-Public Use
  Company Number: US-ABBVIE-5356859

PATIENT
  Age: 56 Year
  Sex: Female

DRUGS (1)
  1. DALVANCE [Suspect]
     Active Substance: DALBAVANCIN
     Indication: Infection
     Dosage: TIME INTERVAL: AS NECESSARY: LEFT HAND
     Route: 042
     Dates: start: 20230510, end: 20230510

REACTIONS (12)
  - Skin discolouration [Recovered/Resolved with Sequelae]
  - Infusion site haemorrhage [Recovered/Resolved with Sequelae]
  - Adverse event [Not Recovered/Not Resolved]
  - Muscular weakness [Unknown]
  - Feeling hot [Recovered/Resolved with Sequelae]
  - Thrombosis [Unknown]
  - Pain in extremity [Unknown]
  - Mass [Unknown]
  - Feeling cold [Not Recovered/Not Resolved]
  - Injection site mass [Unknown]
  - Burning sensation [Unknown]
  - Wrong technique in product usage process [Unknown]

NARRATIVE: CASE EVENT DATE: 20230510
